FAERS Safety Report 6265029-X (Version None)
Quarter: 2009Q3

REPORT INFORMATION
  Report Type: 
  Country: None (occurrence: None)
  Receive Date: 20090713
  Receipt Date: 20090708
  Transmission Date: 20100115
  Serious: Yes (Disabling)
  Sender: FDA-Public Use
  Company Number: JP-B.I. PHARMACEUTICALS,INC./RIDGEFIELD-2009-BP-08122NB

PATIENT
  Age: 70 Year
  Sex: Male

DRUGS (5)
  1. MICARDIS [Suspect]
     Indication: HYPERTENSION
     Dosage: 20 MG
     Route: 048
     Dates: start: 20070228
  2. LIPITOR [Concomitant]
     Dosage: 5 MG
     Route: 048
     Dates: start: 20040601
  3. PANALDINE [Concomitant]
     Dosage: 100 MG
     Route: 048
     Dates: start: 20040406
  4. ASPIRIN [Concomitant]
     Dosage: 1 DF
     Route: 048
     Dates: start: 20050406
  5. NORVASC [Concomitant]
     Dosage: 2.5 MG
     Route: 048
     Dates: start: 20041203

REACTIONS (1)
  - CEREBRAL INFARCTION [None]
